FAERS Safety Report 16938910 (Version 4)
Quarter: 2020Q4

REPORT INFORMATION
  Report Type: Report from Study
  Country: CA (occurrence: CA)
  Receive Date: 20191020
  Receipt Date: 20201219
  Transmission Date: 20210113
  Serious: Yes (Hospitalization, Other)
  Sender: FDA-Public Use
  Company Number: PHHY2017CA043595

PATIENT
  Age: 56 Year
  Sex: Female

DRUGS (12)
  1. ILARIS [Suspect]
     Active Substance: CANAKINUMAB
     Dosage: 150 MG, Q5W
     Route: 058
     Dates: start: 20181010
  2. ILARIS [Suspect]
     Active Substance: CANAKINUMAB
     Dosage: 150 MG, Q5W
     Route: 058
     Dates: start: 20190403
  3. ILARIS [Suspect]
     Active Substance: CANAKINUMAB
     Dosage: UNK
     Route: 065
  4. ILARIS [Suspect]
     Active Substance: CANAKINUMAB
     Dosage: 150 MG, Q5W
     Route: 058
     Dates: start: 20190106
  5. METHOTREXATE. [Concomitant]
     Active Substance: METHOTREXATE
     Indication: PRODUCT USED FOR UNKNOWN INDICATION
     Dosage: UNK
     Route: 065
     Dates: start: 2011
  6. ILARIS [Suspect]
     Active Substance: CANAKINUMAB
     Dosage: UNK
     Route: 065
     Dates: start: 20171222
  7. ILARIS [Suspect]
     Active Substance: CANAKINUMAB
     Dosage: 150 MG, Q5W
     Route: 058
     Dates: start: 2019
  8. VENTOLIN [Concomitant]
     Active Substance: ALBUTEROL SULFATE
     Indication: PRODUCT USED FOR UNKNOWN INDICATION
     Dosage: 2 DF, BID
     Route: 055
  9. ILARIS [Suspect]
     Active Substance: CANAKINUMAB
     Dosage: UNK
     Route: 065
     Dates: start: 20191028
  10. ILARIS [Suspect]
     Active Substance: CANAKINUMAB
     Dosage: UNK (Q6W)
     Route: 065
  11. ILARIS [Suspect]
     Active Substance: CANAKINUMAB
     Indication: MUCKLE-WELLS SYNDROME
     Dosage: 150 MG, Q5W
     Route: 058
     Dates: start: 20121113
  12. FLOVENT [Concomitant]
     Active Substance: FLUTICASONE PROPIONATE
     Indication: PRODUCT USED FOR UNKNOWN INDICATION
     Dosage: 1 DF, BID
     Route: 055

REACTIONS (14)
  - Nasopharyngitis [Unknown]
  - Bronchitis [Unknown]
  - Inappropriate schedule of product administration [Unknown]
  - Migraine [Recovering/Resolving]
  - Sinusitis [Unknown]
  - Illness [Recovering/Resolving]
  - Rhinorrhoea [Recovering/Resolving]
  - Increased bronchial secretion [Unknown]
  - Pneumonia [Unknown]
  - Oropharyngeal pain [Recovered/Resolved]
  - Foreign body [Unknown]
  - Increased upper airway secretion [Unknown]
  - Wrist fracture [Unknown]
  - Fall [Unknown]

NARRATIVE: CASE EVENT DATE: 201702
